FAERS Safety Report 19232008 (Version 2)
Quarter: 2021Q2

REPORT INFORMATION
  Report Type: Spontaneous
  Country: IT (occurrence: IT)
  Receive Date: 20210507
  Receipt Date: 20210524
  Transmission Date: 20210717
  Serious: Yes (Other)
  Sender: FDA-Public Use
  Company Number: IT-ROCHE-2822567

PATIENT

DRUGS (1)
  1. OBINUTUZUMAB. [Suspect]
     Active Substance: OBINUTUZUMAB
     Indication: FOLLICULAR LYMPHOMA
     Route: 042

REACTIONS (1)
  - COVID-19 [Unknown]
